FAERS Safety Report 10979161 (Version 1)
Quarter: 2015Q2

REPORT INFORMATION
  Report Type: Report from Study
  Country: US (occurrence: US)
  Receive Date: 20150402
  Receipt Date: 20150402
  Transmission Date: 20150821
  Serious: Yes (Other)
  Sender: FDA-Public Use
  Company Number: US-RB PHARMACEUTICALS LIMITED-RB-077611-2015

PATIENT
  Age: 33 Year
  Sex: Male

DRUGS (1)
  1. SUBOXONE [Suspect]
     Active Substance: BUPRENORPHINE HYDROCHLORIDE\NALOXONE HYDROCHLORIDE
     Indication: PRODUCT USED FOR UNKNOWN INDICATION
     Dosage: UNK
     Route: 065

REACTIONS (4)
  - Drug withdrawal syndrome [Not Recovered/Not Resolved]
  - Hepatitis C [Not Recovered/Not Resolved]
  - Yellow skin [Not Recovered/Not Resolved]
  - Intentional underdose [Not Recovered/Not Resolved]
